FAERS Safety Report 5400440-8 (Version None)
Quarter: 2007Q3

REPORT INFORMATION
  Report Type: 
  Country: None (occurrence: None)
  Receive Date: 20070730
  Receipt Date: 20070720
  Transmission Date: 20080115
  Serious: Yes (Other)
  Sender: FDA-Public Use
  Company Number: B0480943A

PATIENT
  Age: 63 Year
  Sex: Male

DRUGS (1)
  1. AVANDAMET [Suspect]
     Route: 048
     Dates: start: 20070608

REACTIONS (1)
  - HEMIPLEGIA [None]
